FAERS Safety Report 10636915 (Version 1)
Quarter: 2014Q4

REPORT INFORMATION
  Report Type: Spontaneous
  Country: JP (occurrence: JP)
  Receive Date: 20141208
  Receipt Date: 20141208
  Transmission Date: 20150529
  Serious: Yes (Other)
  Sender: FDA-Public Use
  Company Number: JP-ASTRAZENECA-2014SE92151

PATIENT
  Age: 80 Year
  Sex: Female

DRUGS (2)
  1. ANAPEINE [Suspect]
     Active Substance: ROPIVACAINE HYDROCHLORIDE
     Dosage: 2 MG/ML, DOSE UNKNOWN
     Route: 065
  2. OTHER ANTIBIOTIC PREPARATIONS(INCLUDING MIXED ANTIBIOTIC PREPARATIONS) [Concomitant]
     Dosage: DOSE UNKNOWN
     Route: 065

REACTIONS (1)
  - Erythema multiforme [Unknown]
